FAERS Safety Report 16958484 (Version 2)
Quarter: 2019Q4

REPORT INFORMATION
  Report Type: Spontaneous
  Country: FR (occurrence: FR)
  Receive Date: 20191024
  Receipt Date: 20191030
  Transmission Date: 20200122
  Serious: Yes (Other)
  Sender: FDA-Public Use
  Company Number: FR-GILEAD-2019-0433568

PATIENT
  Age: 68 Year
  Sex: Male

DRUGS (10)
  1. CIALIS [Concomitant]
     Active Substance: TADALAFIL
  2. ENALAPRIL [Concomitant]
     Active Substance: ENALAPRIL
  3. OMEPRAZOLE. [Concomitant]
     Active Substance: OMEPRAZOLE
  4. ARNIDACOL [Concomitant]
  5. TRUVADA [Suspect]
     Active Substance: EMTRICITABINE\TENOFOVIR DISOPROXIL FUMARATE
     Indication: HIV INFECTION
     Dosage: UNK
     Route: 065
     Dates: start: 20061206, end: 20070719
  6. DEXERYL [GLYCEROL;PARAFFIN, LIQUID;WHITE SOFT PARAFFIN] [Concomitant]
     Active Substance: GLYCERIN\MINERAL OIL\PETROLATUM
  7. BIKTARVY [Suspect]
     Active Substance: BICTEGRAVIR SODIUM\EMTRICITABINE\TENOFOVIR ALAFENAMIDE FUMARATE
     Indication: HIV INFECTION
     Dosage: UNK
     Route: 065
     Dates: start: 20181217
  8. UVEDOSE [Concomitant]
     Active Substance: CHOLECALCIFEROL
  9. PARACETAMOL [Concomitant]
     Active Substance: ACETAMINOPHEN
  10. VOLTARENE (DICLOFENAC SODIUM) [Concomitant]
     Active Substance: DICLOFENAC SODIUM

REACTIONS (2)
  - Liver function test abnormal [Unknown]
  - Renal failure [Unknown]

NARRATIVE: CASE EVENT DATE: 20190128
